FAERS Safety Report 7368408-2 (Version None)
Quarter: 2011Q1

REPORT INFORMATION
  Report Type: 
  Country: None (occurrence: None)
  Receive Date: 20110311
  Receipt Date: 20110228
  Transmission Date: 20110831
  Serious: Yes (Other)
  Sender: FDA-Public Use
  Company Number: 026949

PATIENT
  Sex: Female

DRUGS (3)
  1. CIMZIA [Suspect]
  2. CIMZIA [Suspect]
     Indication: CROHN'S DISEASE
     Dosage: (400 MG, EVERY 28 DAYS SUBCUTANEOUS), (SUBCUTANEOUS)
     Route: 058
     Dates: start: 20110101
  3. CIMZIA [Suspect]
     Indication: CROHN'S DISEASE
     Dosage: (400 MG, EVERY 28 DAYS SUBCUTANEOUS), (SUBCUTANEOUS)
     Route: 058
     Dates: start: 20100601, end: 20110201

REACTIONS (2)
  - METASTASES TO LUNG [None]
  - COLON CANCER METASTATIC [None]
